FAERS Safety Report 7794409-6 (Version None)
Quarter: 2011Q4

REPORT INFORMATION
  Report Type: 
  Country: None (occurrence: None)
  Receive Date: 20111004
  Receipt Date: 20111004
  Transmission Date: 20120403
  Serious: Yes (Hospitalization, Other)
  Sender: FDA-Public Use
  Company Number: None

PATIENT
  Age: 39 Year
  Sex: Female
  Weight: 122.46 kg

DRUGS (1)
  1. LISINOPRIL AND HYDROCHLOROTHIAZIDE [Suspect]
     Indication: HYPERTENSION
     Dosage: 20-25 MG
     Route: 048
     Dates: start: 20111001, end: 20111001

REACTIONS (15)
  - BLOOD PRESSURE DECREASED [None]
  - DRY MOUTH [None]
  - PRESYNCOPE [None]
  - HEADACHE [None]
  - VASCULAR INJURY [None]
  - DEHYDRATION [None]
  - SPEECH DISORDER [None]
  - COORDINATION ABNORMAL [None]
  - CONFUSIONAL STATE [None]
  - MIDDLE INSOMNIA [None]
  - THIRST [None]
  - ABDOMINAL PAIN [None]
  - RESPIRATORY RATE DECREASED [None]
  - NAUSEA [None]
  - MUSCLE SPASMS [None]
